FAERS Safety Report 9267065 (Version 1)
Quarter: 2013Q2

REPORT INFORMATION
  Report Type: Spontaneous
  Country: US (occurrence: US)
  Receive Date: 20130502
  Receipt Date: 20130502
  Transmission Date: 20140414
  Serious: Yes (Other)
  Sender: FDA-Public Use
  Company Number: US-JNJFOC-20130414108

PATIENT
  Age: 56 Year
  Sex: Male

DRUGS (4)
  1. NICOTINE POLACRILEX LOZENGE 4 MG NICOTINE [Suspect]
     Indication: SMOKING CESSATION THERAPY
     Route: 065
     Dates: start: 20130417
  2. NICOTINE POLACRILEX GUM [Suspect]
     Indication: SMOKING CESSATION THERAPY
     Route: 065
  3. NICOTINE POLACRILEX LOZENGE 2 MG NICOTINE [Suspect]
     Indication: SMOKING CESSATION THERAPY
     Route: 065
  4. NICOTINE PATCH [Suspect]
     Indication: SMOKING CESSATION THERAPY
     Route: 065

REACTIONS (4)
  - Nicotine dependence [Not Recovered/Not Resolved]
  - Drug administration error [Not Recovered/Not Resolved]
  - Drug ineffective [Not Recovered/Not Resolved]
  - Incorrect drug administration duration [None]
